FAERS Safety Report 5683919-3 (Version None)
Quarter: 2008Q1

REPORT INFORMATION
  Report Type: 
  Country: None (occurrence: None)
  Receive Date: 20080328
  Receipt Date: 20080320
  Transmission Date: 20080703
  Serious: Yes (Other)
  Sender: FDA-Public Use
  Company Number: PHHY2008BR03521

PATIENT
  Age: 77 Year
  Sex: Male
  Weight: 49 kg

DRUGS (2)
  1. FORASEQ [Suspect]
     Indication: CHRONIC OBSTRUCTIVE PULMONARY DISEASE
     Dosage: UNK, Q12H
  2. BETAHISTINE HYDROCHLORIDE [Concomitant]
     Indication: LABYRINTHITIS
     Dosage: 16 MG, QD
     Route: 048

REACTIONS (4)
  - ASTHENIA [None]
  - DRUG ADMINISTRATION ERROR [None]
  - GASTRIC OPERATION [None]
  - NEOPLASM MALIGNANT [None]
